FAERS Safety Report 5457955-6 (Version None)
Quarter: 2007Q3

REPORT INFORMATION
  Report Type: 
  Country: None (occurrence: None)
  Receive Date: 20070917
  Receipt Date: 20070904
  Transmission Date: 20080115
  Serious: No
  Sender: FDA-Public Use
  Company Number: US021188

PATIENT
  Age: 5 Year
  Sex: Male

DRUGS (1)
  1. ACTIQ [Suspect]
     Dosage: ONCE BUCCAL
     Route: 002
     Dates: start: 20070613, end: 20070613

REACTIONS (2)
  - ACCIDENTAL DRUG INTAKE BY CHILD [None]
  - DRUG TOXICITY [None]
